FAERS Safety Report 5077103-4 (Version None)
Quarter: 2006Q3

REPORT INFORMATION
  Report Type: 
  Country: None (occurrence: None)
  Receive Date: 20060810
  Receipt Date: 20051212
  Transmission Date: 20061208
  Serious: No
  Sender: FDA-Public Use
  Company Number: US-GLAXOSMITHKLINE-A0585525A

PATIENT
  Age: 35 Year
  Sex: Female

DRUGS (2)
  1. PAXIL [Suspect]
     Indication: DEPRESSION
     Dosage: 40MG PER DAY
     Route: 048
     Dates: start: 20020101, end: 20051101
  2. XANAX [Concomitant]

REACTIONS (4)
  - DIZZINESS [None]
  - INSOMNIA [None]
  - IRRITABILITY [None]
  - NAUSEA [None]
